FAERS Safety Report 7210929-7 (Version None)
Quarter: 2011Q1

REPORT INFORMATION
  Report Type: 
  Country: None (occurrence: None)
  Receive Date: 20110105
  Receipt Date: 20101216
  Transmission Date: 20110831
  Serious: Yes (Hospitalization, Congenital Anomaly)
  Sender: FDA-Public Use
  Company Number: A0680570A

PATIENT
  Sex: Female

DRUGS (4)
  1. PRENATAL VITAMINS [Concomitant]
  2. INSULIN [Concomitant]
  3. LEVOXYL [Concomitant]
  4. PAXIL [Suspect]
     Indication: DEPRESSION
     Dates: start: 20001201, end: 20020901

REACTIONS (3)
  - WOLFF-PARKINSON-WHITE SYNDROME [None]
  - SUPRAVENTRICULAR TACHYCARDIA [None]
  - DRUG EXPOSURE DURING PREGNANCY [None]
